FAERS Safety Report 11358643 (Version 2)
Quarter: 2015Q3

REPORT INFORMATION
  Report Type: Spontaneous
  Country: US (occurrence: US)
  Receive Date: 20150803
  Receipt Date: 20150831
  Transmission Date: 20151125
  Serious: No
  Sender: FDA-Public Use
  Company Number: US-ELI_LILLY_AND_COMPANY-US200901005449

PATIENT
  Sex: Female

DRUGS (16)
  1. FOSAMAX [Concomitant]
     Active Substance: ALENDRONATE SODIUM
  2. ZYPREXA [Suspect]
     Active Substance: OLANZAPINE
     Dosage: 7.5 MG, DAILY (1/D)
     Dates: start: 200406, end: 20040708
  3. CYMBALTA [Suspect]
     Active Substance: DULOXETINE HYDROCHLORIDE
     Dosage: 60 MG, DAILY (1/D)
  4. KEPPRA [Concomitant]
     Active Substance: LEVETIRACETAM
  5. GABAPENTIN. [Concomitant]
     Active Substance: GABAPENTIN
  6. XANAX [Concomitant]
     Active Substance: ALPRAZOLAM
  7. ZYPREXA [Suspect]
     Active Substance: OLANZAPINE
     Indication: DYSTONIA
     Dosage: 5 MG, DAILY (1/D)
     Dates: start: 200404
  8. LORATADINE. [Concomitant]
     Active Substance: LORATADINE
  9. ASPIRIN. [Concomitant]
     Active Substance: ASPIRIN
  10. CYMBALTA [Suspect]
     Active Substance: DULOXETINE HYDROCHLORIDE
     Indication: DYSKINESIA
     Dosage: 30 MG, DAILY (1/D)
  11. MIRAPEX [Concomitant]
     Active Substance: PRAMIPEXOLE DIHYDROCHLORIDE
     Indication: DYSKINESIA
  12. ARTANE [Concomitant]
     Active Substance: TRIHEXYPHENIDYL HYDROCHLORIDE
     Indication: DYSKINESIA
  13. SYNTHROID [Concomitant]
     Active Substance: LEVOTHYROXINE SODIUM
  14. PRILOSEC [Concomitant]
     Active Substance: OMEPRAZOLE MAGNESIUM
  15. ZOCOR [Concomitant]
     Active Substance: SIMVASTATIN
  16. REQUIP [Concomitant]
     Active Substance: ROPINIROLE HYDROCHLORIDE

REACTIONS (6)
  - Muscle disorder [Not Recovered/Not Resolved]
  - Feeling abnormal [Recovered/Resolved]
  - Speech disorder [Not Recovered/Not Resolved]
  - Dystonia [Not Recovered/Not Resolved]
  - Dyskinesia [Not Recovered/Not Resolved]
  - Movement disorder [Not Recovered/Not Resolved]
